FAERS Safety Report 15407922 (Version 1)
Quarter: 2018Q3

REPORT INFORMATION
  Report Type: Spontaneous
  Country: FR (occurrence: FR)
  Receive Date: 20180920
  Receipt Date: 20180920
  Transmission Date: 20181010
  Serious: No
  Sender: FDA-Public Use
  Company Number: FR-PFIZER INC-2018370364

PATIENT
  Age: 9 Month
  Sex: Female
  Weight: 8.3 kg

DRUGS (1)
  1. PRODILANTIN [Suspect]
     Active Substance: FOSPHENYTOIN SODIUM
     Indication: SEIZURE
     Dosage: 1 DF, UNK
     Route: 058
     Dates: start: 20180605, end: 20180605

REACTIONS (1)
  - Administration site extravasation [Recovered/Resolved]

NARRATIVE: CASE EVENT DATE: 20180605
